FAERS Safety Report 7301491-9 (Version None)
Quarter: 2011Q1

REPORT INFORMATION
  Report Type: 
  Country: None (occurrence: None)
  Receive Date: 20110218
  Receipt Date: 20100614
  Transmission Date: 20110831
  Serious: No
  Sender: FDA-Public Use
  Company Number: US-BRISTOL-MYERS SQUIBB COMPANY-15147606

PATIENT
  Age: 48 Year
  Sex: Female
  Weight: 56 kg

DRUGS (3)
  1. KENALOG [Suspect]
     Indication: ARTHRITIS
     Dates: start: 20100608
  2. KENALOG [Suspect]
     Indication: SYNOVITIS
     Dates: start: 20100608
  3. FIORICET [Concomitant]

REACTIONS (7)
  - DIARRHOEA [None]
  - NAUSEA [None]
  - HEART RATE INCREASED [None]
  - RASH PRURITIC [None]
  - FLUSHING [None]
  - DYSPHONIA [None]
  - INFLUENZA LIKE ILLNESS [None]
